FAERS Safety Report 8297211 (Version 4)
Quarter: 2012Q4

REPORT INFORMATION
  Report Type: Report from Study
  Country: US (occurrence: US)
  Receive Date: 20111216
  Receipt Date: 20120831
  Transmission Date: 20130627
  Serious: Yes (Hospitalization)
  Sender: FDA-Public Use
  Company Number: US-JNJFOC-20111204895

PATIENT
  Age: 11 Year
  Sex: Female
  Weight: 36.6 kg

DRUGS (36)
  1. REMICADE [Suspect]
     Indication: CROHN^S DISEASE
     Route: 042
     Dates: start: 20080205, end: 20090114
  2. HUMIRA [Suspect]
     Indication: CROHN^S DISEASE
     Dates: start: 20090218
  3. METHOTREXATE [Suspect]
     Indication: PRODUCT USED FOR UNKNOWN INDICATION
  4. PREDNISONE [Suspect]
     Indication: PRODUCT USED FOR UNKNOWN INDICATION
  5. HYDROCORTISONE [Suspect]
     Indication: PRODUCT USED FOR UNKNOWN INDICATION
  6. FLAGYL [Suspect]
     Indication: PRODUCT USED FOR UNKNOWN INDICATION
  7. CIPROFLOXACIN [Suspect]
     Indication: PRODUCT USED FOR UNKNOWN INDICATION
  8. ANTIBIOTICS [Concomitant]
     Indication: INFLAMMATORY BOWEL DISEASE
  9. PEPTAMEN [Concomitant]
  10. PREVACID [Concomitant]
  11. MULTIVITAMINS [Concomitant]
  12. MINERALS NOS [Concomitant]
  13. LOPERAMIDE [Concomitant]
  14. CHOLECALCIFEROL [Concomitant]
  15. ACETAMINOPHEN [Concomitant]
  16. IRON [Concomitant]
  17. DEXTRAN [Concomitant]
     Route: 042
  18. TOTAL PARENTERAL NUTRITION [Concomitant]
  19. ZINC SULFATE [Concomitant]
  20. PIPERACILLIN TAZOBACTAM [Concomitant]
  21. FOLIC ACID [Concomitant]
  22. MIDAZOLAM [Concomitant]
  23. CEFTRIAXONE [Concomitant]
  24. MORPHINE [Concomitant]
  25. VANCOMYCIN [Concomitant]
  26. NALBUPHINE [Concomitant]
  27. RANITIDINE [Concomitant]
  28. LORAZEPAM [Concomitant]
  29. FISH OIL [Concomitant]
  30. KETOROLAC [Concomitant]
  31. BISACODYL [Concomitant]
  32. ONDANSETRON [Concomitant]
  33. FENTANYL [Concomitant]
  34. DIPHENHYDRAMINE [Concomitant]
  35. PANTOPRAZOLE [Concomitant]
  36. POLYETHYLENE GLYCOL [Concomitant]

REACTIONS (1)
  - Abdominal abscess [Recovered/Resolved with Sequelae]
